FAERS Safety Report 6944886-5 (Version None)
Quarter: 2010Q3

REPORT INFORMATION
  Report Type: 
  Country: None (occurrence: None)
  Receive Date: 20100827
  Receipt Date: 20100825
  Transmission Date: 20110219
  Serious: Yes (Hospitalization, Other)
  Sender: FDA-Public Use
  Company Number: AU-SANOFI-AVENTIS-200814596EU

PATIENT
  Age: 68 Year
  Sex: Female

DRUGS (7)
  1. ENOXAPARIN SODIUM [Suspect]
     Indication: PULMONARY EMBOLISM
     Route: 058
     Dates: start: 20080804, end: 20080811
  2. WARFARIN [Suspect]
     Indication: PULMONARY EMBOLISM
     Route: 048
     Dates: start: 20080805, end: 20090201
  3. CALTRATE [Concomitant]
     Indication: OSTEOPOROSIS
     Route: 048
     Dates: start: 20080804
  4. FOSAMAX [Concomitant]
     Indication: OSTEOPOROSIS
     Route: 048
     Dates: start: 20080804
  5. AMITRIPTYLINE HCL [Concomitant]
     Indication: OSTEOPOROSIS
     Route: 048
     Dates: start: 20080804
  6. ENDONE [Concomitant]
     Route: 048
     Dates: start: 20080804
  7. PANADOL [Concomitant]
     Route: 048
     Dates: start: 20080804

REACTIONS (1)
  - LIVER FUNCTION TEST ABNORMAL [None]
